FAERS Safety Report 8023443 (Version 4)
Quarter: 2014Q2

REPORT INFORMATION
  Report Type: Report from Study
  Country: FR (occurrence: FR)
  Receive Date: 20110706
  Receipt Date: 20140403
  Transmission Date: 20141212
  Serious: Yes (Hospitalization, Other)
  Sender: FDA-Public Use
  Company Number: FR-ROCHE-781818

PATIENT
  Age: 47 Year
  Sex: Female
  Weight: 63 kg

DRUGS (8)
  1. PEG-INTERFERON ALFA 2A [Suspect]
     Indication: CHRONIC MYELOID LEUKAEMIA
     Route: 058
     Dates: start: 20110414, end: 20110607
  2. PEG-INTERFERON ALFA 2A [Suspect]
     Dosage: LAST DOSE PRIOR TO SAE: 08 JULY 2011
     Route: 058
  3. NILOTINIB HYDROCHLORIDE [Suspect]
     Indication: CHRONIC MYELOID LEUKAEMIA
     Route: 048
     Dates: start: 20110512, end: 20110607
  4. NILOTINIB HYDROCHLORIDE [Suspect]
     Route: 048
  5. ZYLORIC [Concomitant]
     Dosage: TOTAL DAILY DOSE: 1/DAY
     Route: 065
  6. ADVIL [Concomitant]
     Dosage: TDD REPORTED AS PRN
     Route: 065
  7. METHERGINE [Concomitant]
  8. TARDYFERON (FRANCE) [Concomitant]
     Route: 048
     Dates: start: 201106, end: 20110712

REACTIONS (6)
  - Thrombocytopenia [Not Recovered/Not Resolved]
  - Anaemia [Not Recovered/Not Resolved]
  - Shock haemorrhagic [Not Recovered/Not Resolved]
  - Metrorrhagia [Not Recovered/Not Resolved]
  - Neutropenia [Recovered/Resolved]
  - Gamma-glutamyltransferase increased [Not Recovered/Not Resolved]
